FAERS Safety Report 8956045 (Version 2)
Quarter: 2012Q4

REPORT INFORMATION
  Report Type: 
  Country: JP (occurrence: JP)
  Receive Date: 20121210
  Receipt Date: 20121226
  Transmission Date: 20130627
  Serious: Yes (Hospitalization)
  Sender: FDA-Public Use
  Company Number: PHHY2012JP112957

PATIENT
  Age: 81 Year
  Sex: Male
  Weight: 75 kg

DRUGS (5)
  1. ZOMETA [Suspect]
     Indication: PROSTATE CANCER METASTATIC
     Dosage: UNK UKN, UNK
     Route: 041
     Dates: start: 20121121
  2. METASTRON [Concomitant]
     Indication: CANCER PAIN
     Dosage: UNK UKN, UNK
     Route: 041
     Dates: start: 20121016
  3. DIOVAN [Concomitant]
     Dosage: 80 mg, UNK
     Route: 048
  4. AMLODIPINE [Concomitant]
     Dosage: 5 mg, UNK
     Route: 048
  5. WELL BI [Concomitant]
     Dosage: 5 mg, UNK
     Route: 048

REACTIONS (3)
  - Paralysis [Unknown]
  - Hypocalcaemia [Recovered/Resolved]
  - Dyskinesia [Unknown]
